FAERS Safety Report 22994279 (Version 3)
Quarter: 2025Q1

REPORT INFORMATION
  Report Type: Report from Study
  Country: US (occurrence: US)
  Receive Date: 20230927
  Receipt Date: 20250311
  Transmission Date: 20250409
  Serious: No
  Sender: TAKEDA
  Company Number: US-TAKEDA-2023TUS092540

PATIENT
  Sex: Male
  Weight: 70.2 kg

DRUGS (1)
  1. VELAGLUCERASE ALFA [Suspect]
     Active Substance: VELAGLUCERASE ALFA
     Indication: Gaucher^s disease
     Dosage: 4400 INTERNATIONAL UNIT, Q3WEEKS

REACTIONS (2)
  - Blood pressure systolic increased [Not Recovered/Not Resolved]
  - Product dose omission issue [Unknown]
